FAERS Safety Report 12810139 (Version 1)
Quarter: 2016Q4

REPORT INFORMATION
  Report Type: Spontaneous
  Country: US (occurrence: US)
  Receive Date: 20161005
  Receipt Date: 20161005
  Transmission Date: 20170207
  Serious: No
  Sender: FDA-Public Use
  Company Number: US-PFIZER INC-2016463024

PATIENT
  Age: 53 Year
  Sex: Female

DRUGS (5)
  1. XELJANZ [Suspect]
     Active Substance: TOFACITINIB CITRATE
     Indication: CHRONIC SINUSITIS
  2. XELJANZ [Suspect]
     Active Substance: TOFACITINIB CITRATE
     Indication: RHINITIS ALLERGIC
  3. XELJANZ [Suspect]
     Active Substance: TOFACITINIB CITRATE
     Indication: RHEUMATOID ARTHRITIS
  4. XELJANZ [Suspect]
     Active Substance: TOFACITINIB CITRATE
     Indication: DEPRESSION
     Dosage: 5 MG, UNK
  5. XELJANZ [Suspect]
     Active Substance: TOFACITINIB CITRATE
     Indication: ASTHMA

REACTIONS (1)
  - Blood cholesterol increased [Unknown]

NARRATIVE: CASE EVENT DATE: 20161003
